FAERS Safety Report 6186421-8 (Version None)
Quarter: 2009Q2

REPORT INFORMATION
  Report Type: 
  Country: None (occurrence: None)
  Receive Date: 20090511
  Receipt Date: 20090409
  Transmission Date: 20091009
  Serious: Yes (Hospitalization)
  Sender: FDA-Public Use
  Company Number: JP-BAXTER-2009BH003980

PATIENT
  Age: 82 Year
  Sex: Female
  Weight: 30 kg

DRUGS (1)
  1. SORBITOL 3% IN PLASTIC CONTAINER [Suspect]
     Indication: TRANSURETHRAL BLADDER RESECTION
     Route: 066
     Dates: start: 20090304, end: 20090304

REACTIONS (6)
  - ABDOMINAL DISTENSION [None]
  - HYPONATRAEMIA [None]
  - MEDICATION ERROR [None]
  - PROCEDURAL COMPLICATION [None]
  - RETROPERITONEAL EFFUSION [None]
  - WEIGHT INCREASED [None]
